FAERS Safety Report 10674561 (Version 2)
Quarter: 2015Q1

REPORT INFORMATION
  Report Type: Spontaneous
  Country: IT (occurrence: IT)
  Receive Date: 20141224
  Receipt Date: 20150120
  Transmission Date: 20150720
  Serious: Yes (Other)
  Sender: FDA-Public Use
  Company Number: IT-PFIZER INC-2014354204

PATIENT
  Age: 37 Year
  Sex: Male
  Weight: 70 kg

DRUGS (8)
  1. LINEZOLID. [Interacting]
     Active Substance: LINEZOLID
     Dosage: 600 MG, EVERY 24HOURS
     Route: 042
  2. LINEZOLID. [Interacting]
     Active Substance: LINEZOLID
     Indication: ENTEROCOCCAL INFECTION
     Dosage: 600 MG, EVERY 12 HOURS
     Route: 042
  3. AMIODARONE HCL [Suspect]
     Active Substance: AMIODARONE HYDROCHLORIDE
     Dosage: UNK
     Route: 065
  4. COLISTIN [Suspect]
     Active Substance: COLISTIN
     Indication: PSEUDOMONAS INFECTION
     Dosage: 9 MILLION IU, ONCE
     Route: 065
  5. MEROPENEM. [Suspect]
     Active Substance: MEROPENEM
     Indication: PSEUDOMONAS INFECTION
     Dosage: 2 G, ONCE
     Route: 042
  6. MEROPENEM. [Suspect]
     Active Substance: MEROPENEM
     Dosage: 0.5 G, EVERY 6 HOURS
     Route: 042
  7. LINEZOLID. [Interacting]
     Active Substance: LINEZOLID
     Dosage: 450 MG, EVERY 48HOURS
     Route: 042
  8. COLISTIN [Suspect]
     Active Substance: COLISTIN
     Dosage: 4.5 MILLION IU, EVERY 12 HOURS
     Route: 065

REACTIONS (3)
  - Neurotoxicity [Unknown]
  - Antibiotic level above therapeutic [Recovered/Resolved]
  - Drug interaction [Recovered/Resolved]
